FAERS Safety Report 23276468 (Version 1)
Quarter: 2023Q4

REPORT INFORMATION
  Report Type: Spontaneous
  Country: US (occurrence: US)
  Receive Date: 20231208
  Receipt Date: 20231208
  Transmission Date: 20240110
  Serious: Yes (Other)
  Sender: FDA-Public Use
  Company Number: US-MYLANLABS-2023M1129374

PATIENT
  Age: 60 Year
  Sex: Female
  Weight: 90.71 kg

DRUGS (5)
  1. HYDROCHLOROTHIAZIDE\VALSARTAN [Suspect]
     Active Substance: HYDROCHLOROTHIAZIDE\VALSARTAN
     Indication: Hypertension
     Dosage: 160 MILLIGRAM
     Route: 065
     Dates: start: 2010, end: 2019
  2. VITAMIN D [Concomitant]
     Active Substance: VITAMIN D NOS
     Indication: General physical condition abnormal
     Dosage: UNK (50,000 UNITS)
     Route: 065
     Dates: start: 2009, end: 2010
  3. LEVOTHYROXINE [Concomitant]
     Active Substance: LEVOTHYROXINE
     Indication: Thyroid disorder
     Dosage: 50 MICROGRAM
     Route: 065
     Dates: start: 2010, end: 2018
  4. VALACYCLOVIR [Concomitant]
     Active Substance: VALACYCLOVIR HYDROCHLORIDE
     Indication: Herpes zoster
     Dosage: 500 MILLIGRAM
     Route: 065
     Dates: start: 2010, end: 2011
  5. NABUMETONE [Concomitant]
     Active Substance: NABUMETONE
     Indication: Arthritis
     Dosage: 750 MILLIGRAM
     Route: 065
     Dates: start: 2011, end: 2014

REACTIONS (3)
  - Adenocarcinoma of colon [Unknown]
  - Carbon dioxide decreased [Unknown]
  - Blood glucose increased [Unknown]

NARRATIVE: CASE EVENT DATE: 20161128
